FAERS Safety Report 14425995 (Version 2)
Quarter: 2019Q1

REPORT INFORMATION
  Report Type: Spontaneous
  Country: US (occurrence: US)
  Receive Date: 20180123
  Receipt Date: 20190117
  Transmission Date: 20190417
  Serious: No
  Sender: FDA-Public Use
  Company Number: US-SIGMAPHARM LABORATORIES, LLC-2017SIG00023

PATIENT
  Age: 70 Year
  Sex: Female
  Weight: 50.79 kg

DRUGS (6)
  1. LIOTHYRONINE SODIUM. [Suspect]
     Active Substance: LIOTHYRONINE SODIUM
     Indication: HYPOTHYROIDISM
     Dosage: 25 MCG, 1X/DAY
  2. LIOTHYRONINE SODIUM. [Suspect]
     Active Substance: LIOTHYRONINE SODIUM
     Dosage: 2.5 MCG, 1X/DAY
     Dates: start: 2017
  3. LIOTHYRONINE SODIUM. [Suspect]
     Active Substance: LIOTHYRONINE SODIUM
     Indication: HYPOTHYROIDISM
     Dosage: 10 MCG, 1X/DAY AT NIGHT
     Route: 048
     Dates: start: 20161213, end: 2016
  4. LIOTHYRONINE SODIUM. [Suspect]
     Active Substance: LIOTHYRONINE SODIUM
     Dosage: 15 MCG, 1X/DAY
     Dates: start: 20170103, end: 2017
  5. LEVOTHYROXINE. [Concomitant]
     Active Substance: LEVOTHYROXINE
     Indication: HYPOTHYROIDISM
     Dosage: 75 MCG, 1X/DAY
     Route: 048
  6. LIOTHYRONINE SODIUM. [Suspect]
     Active Substance: LIOTHYRONINE SODIUM
     Dosage: 12.5 MCG, 1X/DAY
     Route: 048
     Dates: start: 2017

REACTIONS (26)
  - Myalgia [Recovering/Resolving]
  - Arthralgia [Recovering/Resolving]
  - Oedema [Recovering/Resolving]
  - Renal pain [Recovered/Resolved]
  - Heart rate irregular [Recovered/Resolved]
  - Palpitations [Recovered/Resolved]
  - Depression [Recovered/Resolved]
  - Product substitution issue [Recovered/Resolved]
  - Asthenia [Unknown]
  - Reaction to excipient [Recovered/Resolved]
  - Gastrointestinal pain [Recovering/Resolving]
  - Tri-iodothyronine increased [Unknown]
  - Gastrointestinal inflammation [Recovering/Resolving]
  - Discomfort [Unknown]
  - Agitation [Unknown]
  - Abnormal faeces [Recovering/Resolving]
  - Dizziness [Recovered/Resolved]
  - Urine odour abnormal [Unknown]
  - Adrenal disorder [Unknown]
  - Amnesia [Recovering/Resolving]
  - Abdominal discomfort [Recovering/Resolving]
  - Hypervigilance [Recovered/Resolved]
  - Visual acuity reduced [Unknown]
  - Confusional state [Recovering/Resolving]
  - Flatulence [Recovered/Resolved]
  - Malabsorption [Unknown]

NARRATIVE: CASE EVENT DATE: 201612
